FAERS Safety Report 5422109-6 (Version None)
Quarter: 2007Q3

REPORT INFORMATION
  Report Type: 
  Country: None (occurrence: None)
  Receive Date: 20070822
  Receipt Date: 20070807
  Transmission Date: 20080115
  Serious: Yes (Hospitalization, Other)
  Sender: FDA-Public Use
  Company Number: US-AMGEN-US237649

PATIENT
  Sex: Male
  Weight: 75.8 kg

DRUGS (21)
  1. ARANESP [Suspect]
     Indication: RENAL FAILURE CHRONIC
     Dates: start: 20050820
  2. ARANESP [Suspect]
     Indication: RENAL TRANSPLANT
  3. PLAVIX [Concomitant]
  4. COUMADIN [Concomitant]
  5. PREDNISONE TAB [Concomitant]
  6. TERAZOSIN HCL [Concomitant]
  7. ZOCOR [Concomitant]
  8. FERROUS SULFATE TAB [Concomitant]
  9. FELODIPINE [Concomitant]
  10. CELLCEPT [Concomitant]
  11. ADVAIR DISKUS 100/50 [Concomitant]
  12. COLACE [Concomitant]
  13. ZOLOFT [Concomitant]
  14. GLUCOTROL [Concomitant]
  15. DIGOXIN [Concomitant]
  16. PROTONIX [Concomitant]
  17. ALBUTEROL [Concomitant]
  18. METOPROLOL SUCCINATE [Concomitant]
  19. PROGRAF [Concomitant]
  20. FLOMAX [Concomitant]
  21. AVODART [Concomitant]

REACTIONS (6)
  - ACUTE MYOCARDIAL INFARCTION [None]
  - BLOOD CALCIUM DECREASED [None]
  - BLOOD CREATININE INCREASED [None]
  - ENDOCARDITIS ENTEROCOCCAL [None]
  - HAEMOGLOBIN DECREASED [None]
  - URINARY TRACT INFECTION [None]
